FAERS Safety Report 5755457-0 (Version None)
Quarter: 2008Q2

REPORT INFORMATION
  Report Type: 
  Country: None (occurrence: None)
  Receive Date: 20080602
  Receipt Date: 20080525
  Transmission Date: 20081010
  Serious: Yes (Hospitalization)
  Sender: FDA-Public Use
  Company Number: US-ROCHE-566643

PATIENT
  Sex: Female

DRUGS (2)
  1. PEG-INTERFERON A-2A (RO 25-8310) [Suspect]
     Indication: HEPATITIS C
     Dosage: PATIENT ON PEGASYS PRE-FILLED SYRINGE (PFS)
     Route: 065
     Dates: start: 20080226
  2. RIBAVIRIN [Suspect]
     Indication: HEPATITIS C
     Dosage: 1000 MG DIVIDED DOSES
     Route: 065
     Dates: start: 20080226

REACTIONS (1)
  - CONVULSION [None]
